FAERS Safety Report 17759889 (Version 1)
Quarter: 2020Q2

REPORT INFORMATION
  Report Type: Spontaneous
  Country: US (occurrence: US)
  Receive Date: 20200508
  Receipt Date: 20200508
  Transmission Date: 20200714
  Serious: No
  Sender: FDA-Public Use
  Company Number: US-009507513-2005USA002115

PATIENT
  Sex: Male

DRUGS (4)
  1. INTRON A [Suspect]
     Active Substance: INTERFERON ALFA-2B
     Indication: NEOPLASM SKIN
  2. BEXAROTENE. [Suspect]
     Active Substance: BEXAROTENE
     Dosage: UNK
  3. INTRON A [Suspect]
     Active Substance: INTERFERON ALFA-2B
     Indication: CUTANEOUS T-CELL LYMPHOMA
     Dosage: STRENGTH: 18-MILLIMETER INTERNATIONAL UNITS/3 MILLILITER, 0.25 MILLILITER, 3 TIMES A WEEK
     Route: 058
  4. TARGRETIN [Suspect]
     Active Substance: BEXAROTENE
     Dosage: UNK

REACTIONS (1)
  - Skin irritation [Unknown]
